FAERS Safety Report 12750248 (Version 2)
Quarter: 2021Q4

REPORT INFORMATION
  Report Type: Spontaneous
  Country: CA (occurrence: CA)
  Receive Date: 20160916
  Receipt Date: 20211013
  Transmission Date: 20220303
  Serious: Yes (Life-Threatening, Other)
  Sender: FDA-Public Use
  Company Number: CA-009507513-1609CAN006613

PATIENT
  Age: 75 Year
  Sex: Male
  Weight: 80 kg

DRUGS (1)
  1. KEYTRUDA [Suspect]
     Active Substance: PEMBROLIZUMAB
     Indication: Metastatic malignant melanoma
     Dosage: 150 MG, Q3W,INTRAVENOUS (I.V) INFUSION, SINGLE USE VIAL.
     Route: 042
     Dates: start: 20151105, end: 20160129

REACTIONS (2)
  - Acute kidney injury [Recovering/Resolving]
  - Fibrosis [Recovering/Resolving]

NARRATIVE: CASE EVENT DATE: 20160106
